FAERS Safety Report 23587405 (Version 4)
Quarter: 2025Q2

REPORT INFORMATION
  Report Type: Spontaneous
  Country: US (occurrence: US)
  Receive Date: 20240301
  Receipt Date: 20250529
  Transmission Date: 20250716
  Serious: Yes (Hospitalization)
  Sender: PFIZER
  Company Number: US-PFIZER INC-PV202300154080

PATIENT
  Age: 72 Year
  Sex: Male

DRUGS (3)
  1. BOSULIF [Suspect]
     Active Substance: BOSUTINIB MONOHYDRATE
     Indication: Chronic myeloid leukaemia
     Dosage: 100MG TABLET, 4 TABLETS DAILY WITH FOOD
     Route: 048
  2. BOSULIF [Suspect]
     Active Substance: BOSUTINIB MONOHYDRATE
     Dosage: 500MG TABLET, 1 TABLET WITH FOOD ORALLY ONCE A DAY
     Route: 048
  3. OMEPRAZOLE [Concomitant]
     Active Substance: OMEPRAZOLE
     Dosage: 1 CAPSULE 1/2 TO 1 HOUR BEFORE MORNING MEAL ORALLY ONCE A DAY
     Route: 048

REACTIONS (2)
  - COVID-19 [Unknown]
  - Respiratory syncytial virus infection [Unknown]
